FAERS Safety Report 18640446 (Version 1)
Quarter: 2020Q4

REPORT INFORMATION
  Report Type: Spontaneous
  Country: US (occurrence: US)
  Receive Date: 20201221
  Receipt Date: 20201221
  Transmission Date: 20210114
  Serious: No
  Sender: FDA-Public Use
  Company Number: US-APOTEX-2020AP022920

PATIENT
  Age: 50 Year
  Sex: Male

DRUGS (1)
  1. ERLOTINIB [Suspect]
     Active Substance: ERLOTINIB
     Indication: LUNG ADENOCARCINOMA RECURRENT
     Dosage: UNK
     Route: 065

REACTIONS (2)
  - Traumatic haematoma [Unknown]
  - Xeroderma [Unknown]
